FAERS Safety Report 12184820 (Version 1)
Quarter: 2016Q1

REPORT INFORMATION
  Report Type: Spontaneous
  Country: US (occurrence: US)
  Receive Date: 20160316
  Receipt Date: 20160316
  Transmission Date: 20160526
  Serious: Yes (Hospitalization)
  Sender: FDA-Public Use
  Company Number: US-SIGMA-TAU US-2016STPI000181

PATIENT
  Age: 74 Year
  Sex: Male

DRUGS (1)
  1. MATULANE [Suspect]
     Active Substance: PROCARBAZINE HYDROCHLORIDE
     Indication: NEOPLASM MALIGNANT
     Dosage: 150 MG, QD X 8 DAYS
     Route: 048
     Dates: start: 20151106

REACTIONS (2)
  - Ammonia increased [Unknown]
  - Mental status changes [Unknown]

NARRATIVE: CASE EVENT DATE: 201602
